FAERS Safety Report 8459674-0 (Version None)
Quarter: 2012Q2

REPORT INFORMATION
  Report Type: 
  Country: None (occurrence: None)
  Receive Date: 20120622
  Receipt Date: 20120613
  Transmission Date: 20120825
  Serious: Yes (Hospitalization, Other)
  Sender: FDA-Public Use
  Company Number: US-BRISTOL-MYERS SQUIBB COMPANY-16656399

PATIENT
  Age: 72 Year
  Sex: Male

DRUGS (2)
  1. PREDNISONE TAB [Suspect]
  2. YERVOY [Suspect]
     Indication: METASTATIC MALIGNANT MELANOMA
     Route: 042
     Dates: start: 20111105, end: 20120201

REACTIONS (2)
  - HYPOPITUITARISM [None]
  - HYPERGLYCAEMIA [None]
